FAERS Safety Report 4727813-0 (Version None)
Quarter: 2005Q3

REPORT INFORMATION
  Report Type: 
  Country: None (occurrence: None)
  Receive Date: 20050727
  Receipt Date: 20050711
  Transmission Date: 20060218
  Serious: Yes (Death, Life-Threatening, Hospitalization)
  Sender: FDA-Public Use
  Company Number: A-CH2005-10027

PATIENT
  Age: 60 Year
  Sex: Male
  Weight: 65 kg

DRUGS (9)
  1. TRACLEER [Suspect]
     Indication: PULMONARY FIBROSIS
     Dosage: 62.5 MG, BID, ORAL
     Route: 048
     Dates: start: 20050610, end: 20050620
  2. THEOPHYLLINE [Suspect]
     Indication: CHRONIC OBSTRUCTIVE PULMONARY DISEASE
     Dosage: 350 MG, BID
     Dates: start: 19900101
  3. OXYGEN (OXYGEN) [Concomitant]
  4. FUROSEMIDE (FUROSEMIDE) [Concomitant]
  5. ENALAPRIL MALEATE [Concomitant]
  6. PREDNISONE TAB [Concomitant]
  7. ALLOPURINOL [Concomitant]
  8. CALCIUM (CALCIUM) [Concomitant]
  9. FORMOTEROL (FORMOTEROL) [Concomitant]

REACTIONS (5)
  - CARDIAC ARREST [None]
  - FALL [None]
  - FATIGUE [None]
  - VENTRICULAR FIBRILLATION [None]
  - VENTRICULAR FLUTTER [None]
